FAERS Safety Report 21086996 (Version 1)
Quarter: 2022Q3

REPORT INFORMATION
  Report Type: Spontaneous
  Country: US (occurrence: US)
  Receive Date: 20220715
  Receipt Date: 20220715
  Transmission Date: 20221027
  Serious: No
  Sender: FDA-Public Use
  Company Number: US-009507513-2206USA005091

PATIENT
  Sex: Female

DRUGS (4)
  1. KEYTRUDA [Suspect]
     Active Substance: PEMBROLIZUMAB
     Indication: Pancreatic carcinoma metastatic
     Dosage: CYCLICAL
  2. KEYTRUDA [Suspect]
     Active Substance: PEMBROLIZUMAB
     Indication: Metastases to lymph nodes
  3. KEYTRUDA [Suspect]
     Active Substance: PEMBROLIZUMAB
     Indication: Metastases to lung
  4. KEYTRUDA [Suspect]
     Active Substance: PEMBROLIZUMAB
     Indication: Metastases to liver

REACTIONS (1)
  - Therapy non-responder [Unknown]
